FAERS Safety Report 21890802 (Version 2)
Quarter: 2023Q1

REPORT INFORMATION
  Report Type: Other
  Country: KR (occurrence: None)
  Receive Date: 20230120
  Receipt Date: 20230126
  Transmission Date: 20230418
  Serious: Yes (Other)
  Sender: FDA-Public Use
  Company Number: KR-ROCHE-3268915

PATIENT

DRUGS (1)
  1. BEVACIZUMAB [Suspect]
     Active Substance: BEVACIZUMAB
     Indication: Eye disorder
     Route: 050

REACTIONS (4)
  - Suspected transmission of an infectious agent via product [Unknown]
  - Endophthalmitis [Unknown]
  - Off label use [Unknown]
  - Off label use [Unknown]
